FAERS Safety Report 25133376 (Version 1)
Quarter: 2025Q1

REPORT INFORMATION
  Report Type: Spontaneous
  Country: CN (occurrence: CN)
  Receive Date: 20250328
  Receipt Date: 20250328
  Transmission Date: 20250409
  Serious: Yes (Other)
  Sender: JOHNSON AND JOHNSON
  Company Number: CN-JNJFOC-20250355147

PATIENT
  Age: 23 Year
  Sex: Male

DRUGS (7)
  1. RISPERDAL [Suspect]
     Active Substance: RISPERIDONE
     Indication: Depression
     Dosage: END DATE 03-MAR-2025
     Route: 048
     Dates: start: 20250226
  2. RISPERDAL [Suspect]
     Active Substance: RISPERIDONE
     Indication: Cognitive disorder
     Route: 048
     Dates: start: 20250303, end: 20250305
  3. RISPERDAL [Suspect]
     Active Substance: RISPERIDONE
     Route: 048
     Dates: start: 20250305, end: 20250305
  4. RISPERDAL [Suspect]
     Active Substance: RISPERIDONE
     Route: 048
     Dates: start: 20250305, end: 20250306
  5. LAMOTRIGINE [Suspect]
     Active Substance: LAMOTRIGINE
     Indication: Adjustment disorder
     Route: 048
     Dates: start: 20250303, end: 20250306
  6. LAMOTRIGINE [Suspect]
     Active Substance: LAMOTRIGINE
     Route: 048
     Dates: start: 20250217, end: 20250303
  7. FLUVOXAMINE MALEATE [Concomitant]
     Active Substance: FLUVOXAMINE MALEATE
     Indication: Affective disorder
     Route: 048
     Dates: start: 20250226, end: 20250310

REACTIONS (2)
  - Ataxia [Recovered/Resolved]
  - Tremor [Recovered/Resolved]

NARRATIVE: CASE EVENT DATE: 20250305
